FAERS Safety Report 6309804-1 (Version None)
Quarter: 2009Q3

REPORT INFORMATION
  Report Type: 
  Country: None (occurrence: None)
  Receive Date: 20090814
  Receipt Date: 20090811
  Transmission Date: 20100115
  Serious: Yes (Hospitalization)
  Sender: FDA-Public Use
  Company Number: US-B.I. PHARMACEUTICALS,INC./RIDGEFIELD-2009-BP-09508BP

PATIENT
  Age: 73 Year
  Sex: Male

DRUGS (6)
  1. SPIRIVA [Suspect]
     Indication: EMPHYSEMA
     Dosage: 18 MCG
     Route: 055
  2. SINGULAIR [Concomitant]
     Indication: HYPERSENSITIVITY
  3. XOPENEX [Concomitant]
     Indication: ASTHMA
  4. SYMBICORT [Concomitant]
     Indication: ASTHMA
  5. MUCINEX [Concomitant]
     Indication: ASTHMA
  6. OXYGEN [Concomitant]
     Indication: EMPHYSEMA

REACTIONS (5)
  - DRUG INEFFECTIVE [None]
  - LOWER LIMB FRACTURE [None]
  - PRODUCT QUALITY ISSUE [None]
  - PULMONARY EMBOLISM [None]
  - PULMONARY THROMBOSIS [None]
